FAERS Safety Report 17992866 (Version 2)
Quarter: 2020Q3

REPORT INFORMATION
  Report Type: Report from Study
  Country: IT (occurrence: IT)
  Receive Date: 20200708
  Receipt Date: 20200710
  Transmission Date: 20201103
  Serious: Yes (Hospitalization, Other)
  Sender: FDA-Public Use
  Company Number: IT-ASTRAZENECA-2020SE84949

PATIENT
  Age: 50 Year
  Sex: Female

DRUGS (4)
  1. LYNPARZA [Suspect]
     Active Substance: OLAPARIB
     Indication: OVARIAN EPITHELIAL CANCER
     Route: 048
     Dates: start: 20200122, end: 20200610
  2. XANANX [Concomitant]
     Dosage: 1 MG 1/2 TABLET IN THE EVENING
  3. BISOPROLOL [Concomitant]
     Active Substance: BISOPROLOL
     Dosage: 1.25 MG 1 TABLET IN THE MORNING
  4. LANSOPRAZOL [Concomitant]
     Active Substance: LANSOPRAZOLE
     Dosage: 30 MG 1 TABLET IN THE MORNING

REACTIONS (2)
  - Hypertransaminasaemia [Unknown]
  - Rash [Unknown]

NARRATIVE: CASE EVENT DATE: 20200610
